FAERS Safety Report 25197114 (Version 1)
Quarter: 2025Q2

REPORT INFORMATION
  Report Type: Spontaneous
  Country: US (occurrence: US)
  Receive Date: 20250415
  Receipt Date: 20250415
  Transmission Date: 20250716
  Serious: Yes (Other)
  Sender: JOHNSON AND JOHNSON
  Company Number: US-JNJFOC-20250389171

PATIENT

DRUGS (2)
  1. RYBREVANT [Suspect]
     Active Substance: AMIVANTAMAB-VMJW
     Indication: Lung neoplasm malignant
  2. PEMETREXED [Concomitant]
     Active Substance: PEMETREXED

REACTIONS (3)
  - Hepatic failure [Not Recovered/Not Resolved]
  - Acute kidney injury [Unknown]
  - Embolism venous [Unknown]
